FAERS Safety Report 18675910 (Version 1)
Quarter: 2020Q4

REPORT INFORMATION
  Report Type: Spontaneous
  Country: US (occurrence: US)
  Receive Date: 20201229
  Receipt Date: 20201229
  Transmission Date: 20210114
  Serious: Yes (Hospitalization)
  Sender: FDA-Public Use
  Company Number: None

PATIENT
  Sex: Female
  Weight: 46.1 kg

DRUGS (4)
  1. DEXAMETHASONE (34521) [Suspect]
     Active Substance: DEXAMETHASONE
     Dates: end: 20201220
  2. ALOXI [Suspect]
     Active Substance: PALONOSETRON HYDROCHLORIDE
     Dates: end: 20201217
  3. FOSAPREPITANT DIMEGLUMINE. [Suspect]
     Active Substance: FOSAPREPITANT DIMEGLUMINE
     Dates: end: 20201217
  4. OLANZAPINE. [Suspect]
     Active Substance: OLANZAPINE
     Dates: end: 20201220

REACTIONS (6)
  - Dysmenorrhoea [None]
  - Vomiting [None]
  - Febrile neutropenia [None]
  - Nausea [None]
  - Diarrhoea [None]
  - Nasal congestion [None]

NARRATIVE: CASE EVENT DATE: 20201223
